FAERS Safety Report 9222882 (Version 1)
Quarter: 2013Q1

REPORT INFORMATION
  Report Type: Spontaneous
  Country: US (occurrence: None)
  Receive Date: 20120914
  Receipt Date: 20120914
  Transmission Date: 20140127
  Serious: Yes (Hospitalization)
  Sender: FDA-Public Use
  Company Number: JPI-P-019701

PATIENT
  Age: 32 Year
  Sex: Male
  Weight: 72.58 kg

DRUGS (6)
  1. XYREM (500 MILLIGRAM/MILLILITERS, SOLUTION) (SODIUM OXYBATE) [Suspect]
     Indication: CATAPLEXY
     Dosage: (4.5 GM 2 IN 1 D)
     Route: 048
     Dates: start: 20071023
  2. EPHEDRINE [Suspect]
     Indication: NARCOLEPSY
  3. AMPHETAMINE DEXTROAMPHETAMINE MIXED SALTS [Concomitant]
  4. ALPRAZOLAM [Concomitant]
  5. LITHIUM CARBONATE [Concomitant]
  6. TRAMADOL [Concomitant]

REACTIONS (3)
  - Dyspnoea [None]
  - Chest discomfort [None]
  - Panic attack [None]
